FAERS Safety Report 25629521 (Version 1)
Quarter: 2025Q3

REPORT INFORMATION
  Report Type: Spontaneous
  Country: US (occurrence: US)
  Receive Date: 20250731
  Receipt Date: 20250731
  Transmission Date: 20251021
  Serious: No
  Sender: MALLINCKRODT
  Company Number: US-MALLINCKRODT-MNK202504181

PATIENT
  Sex: Male

DRUGS (29)
  1. CORTICOTROPIN [Suspect]
     Active Substance: CORTICOTROPIN
     Indication: Polymyositis
     Route: 058
  2. PREDNISONE [Suspect]
     Active Substance: PREDNISONE
     Indication: Product used for unknown indication
  3. BETAMETHASONE\CLOTRIMAZOLE [Concomitant]
     Active Substance: BETAMETHASONE\CLOTRIMAZOLE
  4. GLYCOPYRROLATE [Concomitant]
     Active Substance: GLYCOPYRROLATE
  5. GENVOYA [Concomitant]
     Active Substance: COBICISTAT\ELVITEGRAVIR\EMTRICITABINE\TENOFOVIR ALAFENAMIDE FUMARATE
  6. MAGNESIUM OXIDE [Concomitant]
     Active Substance: MAGNESIUM OXIDE
  7. VITAMIN D3 [Concomitant]
     Active Substance: CHOLECALCIFEROL
  8. VITAMIN C [Concomitant]
     Active Substance: ASCORBIC ACID
  9. VITAMIN B12 [Concomitant]
     Active Substance: CYANOCOBALAMIN
  10. FAMOTIDINE [Concomitant]
     Active Substance: FAMOTIDINE
  11. BREO ELLIPTA [Concomitant]
     Active Substance: FLUTICASONE FUROATE\VILANTEROL TRIFENATATE
  12. DULOXETINE HYDROCHLORIDE [Concomitant]
     Active Substance: DULOXETINE HYDROCHLORIDE
  13. OXYCODONE HYDROCHLORIDE [Concomitant]
     Active Substance: OXYCODONE HYDROCHLORIDE
  14. CALCITONIN SALMON [Concomitant]
     Active Substance: CALCITONIN SALMON
  15. LACTOBACILLUS ACIDOPHILUS [Concomitant]
     Active Substance: LACTOBACILLUS ACIDOPHILUS
  16. VITAMINS [Concomitant]
     Active Substance: VITAMINS
  17. SELENIUM [Concomitant]
     Active Substance: SELENIUM
  18. HERBALS\SAW PALMETTO [Concomitant]
     Active Substance: HERBALS\SAW PALMETTO
  19. LEVETIRACETAM [Concomitant]
     Active Substance: LEVETIRACETAM
  20. OXYBUTYNIN CHLORIDE [Concomitant]
     Active Substance: OXYBUTYNIN CHLORIDE
  21. TAMSULOSIN HYDROCHLORIDE [Concomitant]
     Active Substance: TAMSULOSIN HYDROCHLORIDE
  22. TESTOSTERONE CYPIONATE [Concomitant]
     Active Substance: TESTOSTERONE CYPIONATE
  23. REPAGLINIDE [Concomitant]
     Active Substance: REPAGLINIDE
  24. METFORMIN HYDROCHLORIDE [Concomitant]
     Active Substance: METFORMIN HYDROCHLORIDE
  25. LEVOTHYROXINE SODIUM [Concomitant]
     Active Substance: LEVOTHYROXINE SODIUM
  26. ACTOS [Concomitant]
     Active Substance: PIOGLITAZONE HYDROCHLORIDE
  27. RAMIPRIL [Concomitant]
     Active Substance: RAMIPRIL
  28. METOPROLOL SUCCINATE [Concomitant]
     Active Substance: METOPROLOL SUCCINATE
  29. REPATHA [Concomitant]
     Active Substance: EVOLOCUMAB

REACTIONS (2)
  - Mental disorder [Not Recovered/Not Resolved]
  - Adverse event [Not Recovered/Not Resolved]
